FAERS Safety Report 12633535 (Version 1)
Quarter: 2016Q3

REPORT INFORMATION
  Report Type: Spontaneous
  Country: FR (occurrence: FR)
  Receive Date: 20160809
  Receipt Date: 20160809
  Transmission Date: 20161109
  Serious: Yes (Hospitalization)
  Sender: FDA-Public Use
  Company Number: FR-SA-2016SA143886

PATIENT
  Age: 61 Year
  Sex: Male

DRUGS (10)
  1. RIFADIN [Suspect]
     Active Substance: RIFAMPIN
     Route: 042
     Dates: start: 20160620, end: 20160715
  2. NICOPATCH [Concomitant]
     Active Substance: NICOTINE
  3. EUPANTOL [Concomitant]
     Active Substance: PANTOPRAZOLE SODIUM
  4. KETODERM [Concomitant]
     Active Substance: KETOCONAZOLE
  5. VANCOMYCIN MYLAN [Suspect]
     Active Substance: VANCOMYCIN
     Dosage: 3200 MG (1600MG, 2 IN 1 DAY)
     Route: 042
     Dates: start: 20160620, end: 20160710
  6. OFLOXACIN. [Suspect]
     Active Substance: OFLOXACIN
     Route: 048
     Dates: start: 20160620, end: 20160715
  7. FRAGMIN [Concomitant]
     Active Substance: DALTEPARIN SODIUM
  8. ZOLPIDEM [Concomitant]
     Active Substance: ZOLPIDEM\ZOLPIDEM TARTRATE
  9. ACUPAN [Concomitant]
     Active Substance: NEFOPAM HYDROCHLORIDE
  10. TRAMADOL. [Concomitant]
     Active Substance: TRAMADOL

REACTIONS (1)
  - Drug reaction with eosinophilia and systemic symptoms [Recovered/Resolved]

NARRATIVE: CASE EVENT DATE: 20160710
